FAERS Safety Report 4481084-1 (Version None)
Quarter: 2004Q4

REPORT INFORMATION
  Report Type: 
  Country: None (occurrence: None)
  Receive Date: 20040923
  Receipt Date: 20040601
  Transmission Date: 20050328
  Serious: No
  Sender: FDA-Public Use
  Company Number: USA031255252

PATIENT
  Age: 62 Year
  Sex: 0
  Weight: 76 kg

DRUGS (2)
  1. FORTEO [Suspect]
     Indication: OSTEOPOROSIS
     Dates: start: 20031211
  2. MIACALCIN [Concomitant]

REACTIONS (7)
  - ARTHRALGIA [None]
  - CARTILAGE INJURY [None]
  - HEADACHE [None]
  - JOINT SWELLING [None]
  - PARANASAL SINUS HYPERSECRETION [None]
  - STOMACH DISCOMFORT [None]
  - WEIGHT INCREASED [None]
